FAERS Safety Report 7395408-9 (Version None)
Quarter: 2011Q1

REPORT INFORMATION
  Report Type: 
  Country: None (occurrence: None)
  Receive Date: 20110331
  Receipt Date: 20110331
  Transmission Date: 20110831
  Serious: Yes (Other)
  Sender: FDA-Public Use
  Company Number: None

PATIENT
  Age: 26 Year
  Sex: Female
  Weight: 52.1637 kg

DRUGS (1)
  1. DEPO-PROVERA [Suspect]
     Indication: CONTRACEPTION
     Dosage: 1 INJECTION IM
     Route: 030
     Dates: start: 20101117, end: 20110217

REACTIONS (8)
  - ASTHENIA [None]
  - MENORRHAGIA [None]
  - HEADACHE [None]
  - FATIGUE [None]
  - VAGINAL HAEMORRHAGE [None]
  - SUICIDAL IDEATION [None]
  - ALOPECIA [None]
  - MOOD SWINGS [None]
